FAERS Safety Report 8611899-7 (Version None)
Quarter: 2012Q3

REPORT INFORMATION
  Report Type: 
  Country: None (occurrence: None)
  Receive Date: 20120822
  Receipt Date: 20120815
  Transmission Date: 20120928
  Serious: Yes (Hospitalization, Other)
  Sender: FDA-Public Use
  Company Number: US-ROCHE-781745

PATIENT
  Sex: Male
  Weight: 63.5 kg

DRUGS (3)
  1. ASPIRIN [Concomitant]
  2. IBUPROFEN [Concomitant]
  3. ACCUTANE [Suspect]
     Indication: ACNE
     Route: 065
     Dates: start: 19910101, end: 19931201

REACTIONS (6)
  - DEPRESSION [None]
  - INTESTINAL OBSTRUCTION [None]
  - COLITIS ULCERATIVE [None]
  - ABDOMINAL PAIN [None]
  - LIP DRY [None]
  - RECTAL HAEMORRHAGE [None]
